FAERS Safety Report 9427843 (Version 1)
Quarter: 2013Q3

REPORT INFORMATION
  Report Type: Report from Study
  Country: US (occurrence: US)
  Receive Date: 20130730
  Receipt Date: 20130730
  Transmission Date: 20140515
  Serious: No
  Sender: FDA-Public Use
  Company Number: US-ABBOTT-12P-163-0968683-00

PATIENT
  Sex: Female
  Weight: 59.02 kg

DRUGS (6)
  1. NIASPAN (COATED) 500MG [Suspect]
     Indication: BLOOD CHOLESTEROL
  2. ASA [Concomitant]
     Indication: PRODUCT USED FOR UNKNOWN INDICATION
     Dosage: TAKES BEFORE NIASPAN
  3. ACTOS [Concomitant]
     Indication: PRODUCT USED FOR UNKNOWN INDICATION
  4. GLUCOSINE [Concomitant]
     Indication: PRODUCT USED FOR UNKNOWN INDICATION
  5. PRAVASTATIN [Concomitant]
     Indication: PRODUCT USED FOR UNKNOWN INDICATION
  6. RAMIDIL [Concomitant]
     Indication: PRODUCT USED FOR UNKNOWN INDICATION

REACTIONS (2)
  - Hot flush [Recovered/Resolved]
  - Pruritus [Recovered/Resolved]
